FAERS Safety Report 12901457 (Version 1)
Quarter: 2016Q4

REPORT INFORMATION
  Report Type: Spontaneous
  Country: JP (occurrence: JP)
  Receive Date: 20161102
  Receipt Date: 20161102
  Transmission Date: 20170207
  Serious: Yes (Other)
  Sender: FDA-Public Use
  Company Number: PHJP2016JP028817

PATIENT
  Age: 46 Year
  Sex: Female
  Weight: 47.8 kg

DRUGS (7)
  1. SANDIMMUN INFUSION [Suspect]
     Active Substance: CYCLOSPORINE
     Dosage: 75 MG, QD
     Route: 041
     Dates: start: 20161006, end: 20161007
  2. MIDAZOLAM [Concomitant]
     Active Substance: MIDAZOLAM\MIDAZOLAM HYDROCHLORIDE
     Indication: PRODUCT USED FOR UNKNOWN INDICATION
     Dosage: UNK
     Route: 042
  3. NEORAL [Suspect]
     Active Substance: CYCLOSPORINE
     Indication: INTERSTITIAL LUNG DISEASE
     Dosage: 200 MG, QD
     Route: 048
     Dates: start: 201603, end: 20161027
  4. CYCLOPHOSPHAMIDE. [Concomitant]
     Active Substance: CYCLOPHOSPHAMIDE
     Indication: INTERSTITIAL LUNG DISEASE
     Dosage: UNK
     Route: 065
  5. SANDIMMUN INFUSION [Suspect]
     Active Substance: CYCLOSPORINE
     Dosage: 75 MG, QD
     Route: 041
     Dates: start: 20161012, end: 20161017
  6. SANDIMMUN INFUSION [Suspect]
     Active Substance: CYCLOSPORINE
     Indication: INTERSTITIAL LUNG DISEASE
     Dosage: 275 MG, BID
     Route: 041
     Dates: start: 20160928, end: 20161004
  7. SANDIMMUN INFUSION [Suspect]
     Active Substance: CYCLOSPORINE
     Dosage: 125 MG, QD
     Route: 041
     Dates: start: 20161005, end: 20161005

REACTIONS (9)
  - Oral administration complication [Unknown]
  - Acute kidney injury [Not Recovered/Not Resolved]
  - White blood cell count decreased [Recovered/Resolved]
  - Interstitial lung disease [Unknown]
  - Drug ineffective [Unknown]
  - Product use issue [Unknown]
  - Anuria [Unknown]
  - Haemoglobin decreased [Unknown]
  - Immunosuppressant drug level increased [Unknown]

NARRATIVE: CASE EVENT DATE: 20161005
